FAERS Safety Report 7461569-6 (Version None)
Quarter: 2011Q2

REPORT INFORMATION
  Report Type: 
  Country: None (occurrence: None)
  Receive Date: 20110506
  Receipt Date: 20110421
  Transmission Date: 20111010
  Serious: No
  Sender: FDA-Public Use
  Company Number: US-B.I. PHARMACEUTICALS,INC./RIDGEFIELD-2011-BP-11443BP

PATIENT
  Sex: Male

DRUGS (13)
  1. TORSEMIDE [Concomitant]
     Indication: OEDEMA
  2. TORSEMIDE [Concomitant]
     Indication: FLUID RETENTION
  3. CRESTOR [Concomitant]
     Indication: BLOOD CHOLESTEROL INCREASED
  4. SPIRONOLACTONE [Concomitant]
     Indication: OEDEMA
  5. PRADAXA [Suspect]
     Indication: ATRIAL FIBRILLATION
     Dosage: 300 MG
     Route: 048
     Dates: start: 20110101
  6. FLOMAX [Concomitant]
     Indication: BENIGN PROSTATIC HYPERPLASIA
  7. FINASTERIDE [Concomitant]
     Indication: BENIGN PROSTATIC HYPERPLASIA
  8. CARVEDILOL [Concomitant]
     Indication: HYPERTENSION
     Dosage: 12.5 MG
  9. CARVEDILOL [Concomitant]
     Indication: ATRIAL FIBRILLATION
  10. OMEPRAZOLE [Concomitant]
     Indication: GASTROOESOPHAGEAL REFLUX DISEASE
  11. DIGOXIN [Concomitant]
     Indication: ATRIAL FIBRILLATION
  12. GLYBURIDE [Concomitant]
     Indication: DIABETES MELLITUS
  13. ASPIRIN [Concomitant]
     Indication: ATRIAL FIBRILLATION

REACTIONS (3)
  - THROAT IRRITATION [None]
  - DIARRHOEA [None]
  - OROPHARYNGEAL PAIN [None]
